FAERS Safety Report 14697408 (Version 1)
Quarter: 2018Q1

REPORT INFORMATION
  Report Type: Spontaneous
  Country: US (occurrence: US)
  Receive Date: 20180330
  Receipt Date: 20180330
  Transmission Date: 20180509
  Serious: No
  Sender: FDA-Public Use
  Company Number: US-SA-2017SA163512

PATIENT
  Age: 25 Year
  Sex: Male

DRUGS (3)
  1. ALLEGRA ALLERGY [Suspect]
     Active Substance: FEXOFENADINE HYDROCHLORIDE
     Indication: HYPERSENSITIVITY
     Route: 048
     Dates: start: 201705, end: 201705
  2. ZADITOR [Suspect]
     Active Substance: KETOTIFEN FUMARATE
     Dosage: EYE DROP
     Route: 065
  3. FLUTICASONE. [Suspect]
     Active Substance: FLUTICASONE
     Dosage: NASAL SPRAY   SOMETIMES USING UP TO THREE TIMES THE AMOUNT OF THE NASAL SPRAY
     Route: 045

REACTIONS (2)
  - Malaise [Unknown]
  - Disturbance in attention [Unknown]
